FAERS Safety Report 5558294-5 (Version None)
Quarter: 2007Q4

REPORT INFORMATION
  Report Type: 
  Country: None (occurrence: None)
  Receive Date: 20071214
  Receipt Date: 20071211
  Transmission Date: 20080405
  Serious: Yes (Hospitalization)
  Sender: FDA-Public Use
  Company Number: US-GILEAD-2007-0014576

PATIENT
  Sex: Female

DRUGS (2)
  1. LETAIRIS [Suspect]
  2. GABAPENTIN [Concomitant]
     Indication: PAIN

REACTIONS (1)
  - DRUG HYPERSENSITIVITY [None]
